FAERS Safety Report 14169889 (Version 1)
Quarter: 2017Q4

REPORT INFORMATION
  Report Type: Spontaneous
  Country: CA (occurrence: CA)
  Receive Date: 20171108
  Receipt Date: 20171108
  Transmission Date: 20180321
  Serious: Yes (Other)
  Sender: FDA-Public Use
  Company Number: CA-PFIZER INC-2017174488

PATIENT
  Age: 81 Year
  Sex: Female

DRUGS (2)
  1. FASLODEX [Concomitant]
     Active Substance: FULVESTRANT
     Dosage: UNK
  2. IBRANCE [Suspect]
     Active Substance: PALBOCICLIB
     Indication: BREAST CANCER METASTATIC
     Dosage: 125 MG DAILY, CYCLIC (FOR 21 DAYS ON 28)
     Route: 048
     Dates: start: 20170420, end: 20170616

REACTIONS (2)
  - Pulmonary toxicity [Unknown]
  - Product use in unapproved indication [Unknown]
